FAERS Safety Report 4977863-4 (Version None)
Quarter: 2006Q2

REPORT INFORMATION
  Report Type: 
  Country: None (occurrence: None)
  Receive Date: 20060420
  Receipt Date: 20060410
  Transmission Date: 20061013
  Serious: Yes (Other)
  Sender: FDA-Public Use
  Company Number: NL-GLAXOSMITHKLINE-B0420070A

PATIENT
  Age: 76 Year
  Sex: Male
  Weight: 80 kg

DRUGS (2)
  1. AMOXICILLIN TRIHYDRATE + POTASSIUM CLAVULANATE [Suspect]
     Indication: PNEUMONIA
     Dosage: 1TAB THREE TIMES PER DAY
     Route: 065
     Dates: start: 20060312, end: 20060316
  2. ACENOCOUMAROL [Concomitant]
     Dosage: 1MG UNKNOWN
     Route: 065
     Dates: start: 20050509

REACTIONS (1)
  - DELIRIUM [None]
